FAERS Safety Report 16203991 (Version 1)
Quarter: 2019Q2

REPORT INFORMATION
  Report Type: Spontaneous
  Country: US (occurrence: US)
  Receive Date: 20190416
  Receipt Date: 20190416
  Transmission Date: 20190711
  Serious: No
  Sender: FDA-Public Use
  Company Number: US-PROVELL PHARMACEUTICALS-2065910

PATIENT
  Sex: Female

DRUGS (4)
  1. AMLODIPINE [Suspect]
     Active Substance: AMLODIPINE BESYLATE
  2. EUTHYROX [Suspect]
     Active Substance: LEVOTHYROXINE SODIUM
     Indication: PRODUCT USED FOR UNKNOWN INDICATION
  3. LOSARTIN [Suspect]
     Active Substance: LOSARTAN
  4. XALATAN [Concomitant]
     Active Substance: LATANOPROST
     Dates: start: 2017

REACTIONS (1)
  - Ill-defined disorder [None]
